FAERS Safety Report 7880319-2 (Version None)
Quarter: 2011Q4

REPORT INFORMATION
  Report Type: 
  Country: None (occurrence: None)
  Receive Date: 20111101
  Receipt Date: 20111025
  Transmission Date: 20120403
  Serious: Yes (Other)
  Sender: FDA-Public Use
  Company Number: US-BAYER-2011-006754

PATIENT
  Age: 52 Year
  Sex: Male
  Weight: 105 kg

DRUGS (17)
  1. HEPARIN [Concomitant]
     Dosage: 5000 U, UNK
     Route: 042
     Dates: start: 20040227
  2. VERSED [Concomitant]
     Dosage: 5 MG, UNK
     Dates: start: 20040227
  3. TRASYLOL [Suspect]
     Indication: CORONARY ARTERY BYPASS
     Dosage: 100 CC LOADING DOSE
     Route: 042
     Dates: start: 20040227, end: 20040227
  4. LOPRESSOR [Concomitant]
  5. LIDOCAINE [Concomitant]
     Dosage: 100 MG, UNK
     Dates: start: 20040227
  6. HEPARIN [Concomitant]
     Dosage: 42,000 UNITS
     Route: 042
     Dates: start: 20040227
  7. REGULAR INSULIN [Concomitant]
     Dosage: UNK
     Dates: start: 20040227
  8. LASIX [Concomitant]
     Dosage: 10 MG, UNK
     Route: 042
     Dates: start: 20040227
  9. ALBUMIN (HUMAN) [Concomitant]
     Dosage: 100
     Route: 042
  10. NOVOLIN N [Concomitant]
  11. ATENOLOL [Concomitant]
     Dosage: 25 MG, QD
     Route: 048
  12. DOPAMINE HCL [Concomitant]
     Dosage: 5MICROGRAMS/KILOGRAM/MINUTE
     Route: 042
     Dates: start: 20040227
  13. PROTAMINE SULFATE [Concomitant]
     Dosage: 540 MG, UNK
     Route: 042
     Dates: start: 20040227
  14. TRASYLOL [Suspect]
  15. LISINOPRIL [Concomitant]
     Dosage: UNK
     Dates: start: 19800101
  16. ANCEF [Concomitant]
     Dosage: 1 G, UNK
     Route: 042
     Dates: start: 20040227, end: 20040227
  17. MANNITOL [Concomitant]
     Dosage: UNK
     Dates: start: 20040227

REACTIONS (9)
  - STRESS [None]
  - ANXIETY [None]
  - RENAL INJURY [None]
  - EMOTIONAL DISTRESS [None]
  - UNEVALUABLE EVENT [None]
  - PAIN [None]
  - RENAL FAILURE [None]
  - RENAL IMPAIRMENT [None]
  - FEAR [None]
